FAERS Safety Report 25658015 (Version 1)
Quarter: 2025Q3

REPORT INFORMATION
  Report Type: Report from Study
  Country: US (occurrence: US)
  Receive Date: 20250808
  Receipt Date: 20250808
  Transmission Date: 20251020
  Serious: Yes (Hospitalization, Other)
  Sender: UCB
  Company Number: US-UCBSA-2025025652

PATIENT
  Age: 50 Year
  Sex: Female
  Weight: 47.6 kg

DRUGS (3)
  1. FINTEPLA [Suspect]
     Active Substance: FENFLURAMINE
     Indication: Lennox-Gastaut syndrome
     Dosage: 2.2 MILLILITER, 2X/DAY (BID)
     Route: 048
     Dates: start: 20241114
  2. FINTEPLA [Suspect]
     Active Substance: FENFLURAMINE
     Indication: Seizure
     Dosage: 2.2 MILLILITER, 2X/DAY (BID)
     Route: 048
  3. FINTEPLA [Suspect]
     Active Substance: FENFLURAMINE
     Dosage: 2.2 MILLILITER, 2X/DAY (BID)
     Dates: start: 20241201

REACTIONS (5)
  - Pneumonia [Recovered/Resolved]
  - Pulmonary valve incompetence [Not Recovered/Not Resolved]
  - Feeding disorder [Unknown]
  - Anxiety [Unknown]
  - Patient uncooperative [Unknown]

NARRATIVE: CASE EVENT DATE: 20250424
